FAERS Safety Report 9765032 (Version 3)
Quarter: 2014Q1

REPORT INFORMATION
  Report Type: Other
  Country: JP (occurrence: JP)
  Receive Date: 20131217
  Receipt Date: 20140117
  Transmission Date: 20141002
  Serious: Yes (Other)
  Sender: FDA-Public Use
  Company Number: JP-MPIJNJ-2013JNJ001275

PATIENT
  Sex: 0

DRUGS (13)
  1. VELCADE [Suspect]
     Indication: PLASMA CELL MYELOMA
     Dosage: 1.9 MG, UNK
     Route: 058
     Dates: start: 20130425
  2. DEXART [Suspect]
     Indication: PLASMA CELL MYELOMA
     Dosage: 20 MG, UNK
     Route: 042
     Dates: start: 20130425
  3. BROTIZOLAM [Concomitant]
     Indication: HYPERTENSION
     Dosage: 0.25 MG, QD
     Route: 048
  4. MUCOSTA [Concomitant]
     Indication: GASTRITIS PROPHYLAXIS
     Dosage: 200 MG, QD
     Route: 048
  5. SENNOSIDE                          /00571901/ [Concomitant]
     Indication: CONSTIPATION PROPHYLAXIS
     Dosage: 24 MG, QD
     Route: 048
  6. MAGMITT [Concomitant]
     Indication: HYPERCHLORHYDRIA
     Dosage: 750 MG, QD
     Route: 048
  7. AVOLVE [Concomitant]
     Indication: BENIGN PROSTATIC HYPERPLASIA
     Dosage: 0.5 MG, QD
     Route: 048
  8. EBRANTIL                           /00631801/ [Concomitant]
     Indication: BENIGN PROSTATIC HYPERPLASIA
     Dosage: 60 MG, QD
     Route: 048
  9. NEUMETHYCOLE [Concomitant]
     Indication: NEUROPATHY PERIPHERAL
     Dosage: 1.5 MG, QD
     Route: 048
  10. CARDENALIN [Concomitant]
     Indication: HYPERTENSION
     Dosage: 1 MG, QD
     Route: 048
  11. FAMOTIDINE [Concomitant]
     Indication: GASTRITIS PROPHYLAXIS
     Dosage: 20 MG, QD
     Route: 048
  12. POLAPREZINC [Concomitant]
     Indication: GASTRITIS PROPHYLAXIS
     Dosage: 75 MG, QD
     Route: 048
  13. AMLODIPINE [Concomitant]
     Indication: HYPERTENSION
     Dosage: 5 MG, QD
     Route: 048

REACTIONS (1)
  - Hepatitis B [Recovered/Resolved]
